FAERS Safety Report 5550461-X (Version None)
Quarter: 2007Q4

REPORT INFORMATION
  Report Type: 
  Country: None (occurrence: None)
  Receive Date: 20071212
  Receipt Date: 20070502
  Transmission Date: 20080405
  Serious: No
  Sender: FDA-Public Use
  Company Number: US-AMGEN-KDL223056

PATIENT
  Sex: Female

DRUGS (4)
  1. ENBREL [Suspect]
     Indication: PSORIATIC ARTHROPATHY
     Route: 058
     Dates: start: 20060519
  2. ENBREL [Suspect]
     Indication: PSORIASIS
  3. ARAVA [Concomitant]
     Dates: start: 20050101
  4. METHOTREXATE [Concomitant]
     Route: 048
     Dates: start: 20060101

REACTIONS (4)
  - INJECTION SITE BRUISING [None]
  - NERVE COMPRESSION [None]
  - OXYGEN CONSUMPTION [None]
  - RASH GENERALISED [None]
